FAERS Safety Report 8408354-6 (Version None)
Quarter: 2012Q2

REPORT INFORMATION
  Report Type: 
  Country: None (occurrence: None)
  Receive Date: 20120604
  Receipt Date: 20120525
  Transmission Date: 20120825
  Serious: Yes (Hospitalization)
  Sender: FDA-Public Use
  Company Number: FR-ABBOTT-12P-056-0939427-01

PATIENT
  Sex: Female

DRUGS (2)
  1. HUMIRA [Suspect]
     Route: 058
     Dates: start: 20081001, end: 20120102
  2. HUMIRA [Suspect]
     Indication: CROHN'S DISEASE
     Dosage: 160 MG (BASELINE)/80 MG (WEEK 2)
     Route: 058
     Dates: start: 20080708, end: 20080808

REACTIONS (3)
  - HYPERTHERMIA [None]
  - BEHCET'S SYNDROME [None]
  - EYE PAIN [None]
